FAERS Safety Report 10477659 (Version 2)
Quarter: 2014Q4

REPORT INFORMATION
  Report Type: Spontaneous
  Country: JP (occurrence: None)
  Receive Date: 20140924
  Receipt Date: 20141001
  Transmission Date: 20150528
  Serious: Yes (Other)
  Sender: FDA-Public Use
  Company Number: KAD201409-001115

PATIENT
  Sex: Female

DRUGS (1)
  1. ANASTROZOLE (ANASTROZOLE) [Suspect]
     Active Substance: ANASTROZOLE
     Indication: BREAST CANCER

REACTIONS (2)
  - Autoimmune hepatitis [None]
  - Condition aggravated [None]
